FAERS Safety Report 5193763-1 (Version None)
Quarter: 2006Q4

REPORT INFORMATION
  Report Type: 
  Country: None (occurrence: None)
  Receive Date: 20061228
  Receipt Date: 20061212
  Transmission Date: 20070319
  Serious: Yes (Hospitalization, Other)
  Sender: FDA-Public Use
  Company Number: FR-GLAXOSMITHKLINE-B0451359A

PATIENT
  Age: 86 Year
  Sex: Female

DRUGS (2)
  1. ARIXTRA [Suspect]
     Indication: PHLEBITIS
     Dosage: 7.5MG SINGLE DOSE
     Route: 058
     Dates: start: 20061101
  2. BLOOD TRANSFUSION [Concomitant]

REACTIONS (6)
  - INFLAMMATION [None]
  - OEDEMA [None]
  - PAIN [None]
  - POST PROCEDURAL HAEMATOMA [None]
  - SECRETION DISCHARGE [None]
  - SKIN INFLAMMATION [None]
